FAERS Safety Report 24202752 (Version 1)
Quarter: 2024Q3

REPORT INFORMATION
  Report Type: Spontaneous
  Country: US (occurrence: US)
  Receive Date: 20240813
  Receipt Date: 20240813
  Transmission Date: 20241016
  Serious: No
  Sender: GLENMARK
  Company Number: US-GLENMARK PHARMACEUTICALS-2024GMK090523

PATIENT

DRUGS (2)
  1. ADAPALENE [Suspect]
     Active Substance: ADAPALENE
     Indication: Acne
     Dosage: OD IN THE EVENING (ONCE DAILY IN THE EVENING APPLIED TO THE SKIN AROUND HER MOUTH, ON HER CHIN, AND
     Route: 061
     Dates: start: 20240418, end: 20240426
  2. EFFACLAR [Suspect]
     Active Substance: ADAPALENE
     Indication: Seborrhoea
     Dosage: UNK, OD IN THE EVENING (ONCE DAILY APPLIED TO THE SKIN AROUND HER MOUTH, ON HER CHIN, AND ON THE TOP
     Route: 061
     Dates: start: 20240418, end: 20240426

REACTIONS (4)
  - Application site exfoliation [Recovered/Resolved]
  - Application site erythema [Recovered/Resolved]
  - Application site dryness [Recovered/Resolved]
  - Application site pain [Recovered/Resolved]

NARRATIVE: CASE EVENT DATE: 20240418
